FAERS Safety Report 9418009 (Version 1)
Quarter: 2013Q3

REPORT INFORMATION
  Report Type: Spontaneous
  Country: US (occurrence: US)
  Receive Date: 20130724
  Receipt Date: 20130724
  Transmission Date: 20140515
  Serious: No
  Sender: FDA-Public Use
  Company Number: US-BAUSCH-BL-2012-000491

PATIENT
  Age: 52 Year
  Sex: Female

DRUGS (3)
  1. OPCON-A [Suspect]
     Indication: EYE IRRITATION
     Dosage: 1 DROP IN EYE(S); ONCE DAILY
     Route: 047
     Dates: start: 201207, end: 201207
  2. OPCON-A [Suspect]
     Indication: EYE PRURITUS
  3. OPCON-A [Suspect]
     Indication: EYE ALLERGY

REACTIONS (1)
  - Eye irritation [Recovered/Resolved]
